FAERS Safety Report 5844494-3 (Version None)
Quarter: 2008Q3

REPORT INFORMATION
  Report Type: 
  Country: None (occurrence: None)
  Receive Date: 20080811
  Receipt Date: 20080729
  Transmission Date: 20090109
  Serious: Yes (Hospitalization)
  Sender: FDA-Public Use
  Company Number: DSA_31886_2008

PATIENT
  Sex: Female

DRUGS (2)
  1. TEMESTA /00273201/ (TEMESTA - LORAZEPAM) (NOT SPECIFIED) [Suspect]
     Indication: AGGRESSION
     Dosage: 2.5 MG QD, SUBLINGUAL
     Route: 060
     Dates: start: 20060918, end: 20060918
  2. ZYPREXA [Suspect]
     Indication: AGGRESSION
     Dosage: 10 MG QD, ORAL
     Route: 048
     Dates: start: 20060918, end: 20060918

REACTIONS (4)
  - ALBUMIN URINE PRESENT [None]
  - FALL [None]
  - OPEN WOUND [None]
  - PUPILLARY LIGHT REFLEX TESTS ABNORMAL [None]
